FAERS Safety Report 6068749-5 (Version None)
Quarter: 2009Q1

REPORT INFORMATION
  Report Type: 
  Country: None (occurrence: None)
  Receive Date: 20090203
  Receipt Date: 20090119
  Transmission Date: 20090719
  Serious: Yes (Hospitalization)
  Sender: FDA-Public Use
  Company Number: 2009000195

PATIENT
  Age: 61 Year
  Sex: Male

DRUGS (4)
  1. TARCEVA [Suspect]
     Indication: NEOPLASM MALIGNANT
     Dosage: (150 MG, QD), ORAL
     Route: 048
     Dates: start: 20080820
  2. BEVACIZUMAB (INJECTION FOR INFUSION) [Suspect]
     Dosage: (465 MG), INTRAVENOUS
     Route: 042
     Dates: start: 20081023, end: 20081023
  3. GEMZAR [Suspect]
     Dosage: (2100 MG), INTRAVENOUS
     Route: 042
     Dates: start: 20080820, end: 20081023
  4. CISPLATIN [Suspect]
     Dosage: (170 MG), INTRAVENOUS
     Route: 042
     Dates: start: 20080820, end: 20081023

REACTIONS (3)
  - GRAND MAL CONVULSION [None]
  - HEADACHE [None]
  - MONOPARESIS [None]
